FAERS Safety Report 6117691-X (Version None)
Quarter: 2009Q1

REPORT INFORMATION
  Report Type: 
  Country: None (occurrence: None)
  Receive Date: 20090314
  Receipt Date: 20090128
  Transmission Date: 20090719
  Serious: No
  Sender: FDA-Public Use
  Company Number: US-ABBOTT-09P-163-0500384-00

PATIENT
  Sex: Female

DRUGS (1)
  1. HUMIRA [Suspect]
     Indication: CROHN'S DISEASE
     Dosage: 40 MG Q WEEKS
     Route: 058
     Dates: start: 20080601

REACTIONS (4)
  - DYSPEPSIA [None]
  - DYSPNOEA [None]
  - NIGHT SWEATS [None]
  - PYREXIA [None]
